FAERS Safety Report 8853655 (Version 3)
Quarter: 2012Q4

REPORT INFORMATION
  Report Type: 
  Country: US (occurrence: US)
  Receive Date: 20121023
  Receipt Date: 20121214
  Transmission Date: 20130627
  Serious: Yes (Other)
  Sender: FDA-Public Use
  Company Number: US-AMGEN-USASP2012067190

PATIENT
  Age: 80 Year
  Sex: Female

DRUGS (2)
  1. ENBREL [Suspect]
     Indication: RHEUMATOID ARTHRITIS
     Dosage: 50 mg, qwk
     Route: 058
     Dates: start: 20121016, end: 20121019
  2. HUMIRA [Concomitant]
     Dosage: 40 mg, q2wk
     Route: 058
     Dates: start: 20121112

REACTIONS (7)
  - Hemianopia [Recovered/Resolved]
  - Breast cancer [Unknown]
  - Vision blurred [Recovered/Resolved]
  - Headache [Recovered/Resolved]
  - Migraine [Recovered/Resolved]
  - Injection site rash [Recovered/Resolved]
  - Psoriasis [Unknown]
